FAERS Safety Report 5819749-9 (Version None)
Quarter: 2008Q3

REPORT INFORMATION
  Report Type: 
  Country: None (occurrence: None)
  Receive Date: 20080717
  Receipt Date: 20080707
  Transmission Date: 20090109
  Serious: Yes (Other)
  Sender: FDA-Public Use
  Company Number: 236429J08USA

PATIENT
  Age: 50 Year
  Sex: Female

DRUGS (6)
  1. REBIF [Suspect]
     Indication: MULTIPLE SCLEROSIS
     Dosage: 8.8 MCG,3 IN 1 WEEKS, SUBCUTANEOUS; 22 MCG, 3 IN 1 WEEKS, SUBCUTANEOUS
     Route: 058
     Dates: start: 20080101, end: 20080101
  2. REBIF [Suspect]
     Indication: MULTIPLE SCLEROSIS
     Dosage: 8.8 MCG,3 IN 1 WEEKS, SUBCUTANEOUS; 22 MCG, 3 IN 1 WEEKS, SUBCUTANEOUS
     Route: 058
     Dates: start: 20080402, end: 20080101
  3. CYMBALTA [Concomitant]
  4. PREVACID [Concomitant]
  5. TOPROL-XL [Concomitant]
  6. SINGULAIR (MONTELUKAST/01362601/) [Concomitant]

REACTIONS (2)
  - ALPHA-1 ANTI-TRYPSIN DEFICIENCY [None]
  - HEPATIC ENZYME INCREASED [None]
